FAERS Safety Report 5494484-8 (Version None)
Quarter: 2007Q4

REPORT INFORMATION
  Report Type: 
  Country: None (occurrence: None)
  Receive Date: 20071023
  Receipt Date: 20071023
  Transmission Date: 20080405
  Serious: No
  Sender: FDA-Public Use
  Company Number: None

PATIENT
  Age: 47 Year
  Sex: Male
  Weight: 102.0593 kg

DRUGS (2)
  1. VIAGRA [Suspect]
     Indication: ERECTILE DYSFUNCTION
     Dosage: 1  AS NEEDED  PO
     Route: 048
     Dates: start: 20070715, end: 20070915
  2. VIAGRA [Suspect]

REACTIONS (2)
  - DEAFNESS UNILATERAL [None]
  - TINNITUS [None]
